FAERS Safety Report 24216003 (Version 2)
Quarter: 2024Q4

REPORT INFORMATION
  Report Type: Report from Study
  Country: RU (occurrence: RU)
  Receive Date: 20240816
  Receipt Date: 20241001
  Transmission Date: 20250115
  Serious: Yes (Other)
  Sender: NOVARTIS
  Company Number: RU-002147023-NVSC2024RU164572

PATIENT
  Age: 44 Year
  Sex: Female

DRUGS (1)
  1. KISQALI [Suspect]
     Active Substance: RIBOCICLIB
     Indication: Breast cancer
     Dosage: 600 MG, QD
     Route: 048
     Dates: start: 20240307, end: 20240621

REACTIONS (1)
  - Hepatitis toxic [Recovered/Resolved]

NARRATIVE: CASE EVENT DATE: 20240628
